FAERS Safety Report 14652550 (Version 1)
Quarter: 2018Q1

REPORT INFORMATION
  Report Type: Spontaneous
  Country: US (occurrence: US)
  Receive Date: 20180316
  Receipt Date: 20180316
  Transmission Date: 20180509
  Serious: Yes (Hospitalization)
  Sender: FDA-Public Use
  Company Number: None

PATIENT
  Age: 41 Year
  Sex: Female
  Weight: 119.32 kg

DRUGS (2)
  1. TAXOL [Suspect]
     Active Substance: PACLITAXEL
     Dates: end: 20180220
  2. CARBOPLATIN. [Suspect]
     Active Substance: CARBOPLATIN
     Dates: end: 20180220

REACTIONS (10)
  - Photosensitivity reaction [None]
  - Orbital myositis [None]
  - Headache [None]
  - Vomiting [None]
  - Hypocalcaemia [None]
  - Eye pain [None]
  - Eye swelling [None]
  - Vision blurred [None]
  - Cellulitis orbital [None]
  - Hypokalaemia [None]

NARRATIVE: CASE EVENT DATE: 20180225
